FAERS Safety Report 25682103 (Version 1)
Quarter: 2025Q3

REPORT INFORMATION
  Report Type: Spontaneous
  Country: CA (occurrence: CA)
  Receive Date: 20250814
  Receipt Date: 20250814
  Transmission Date: 20251020
  Serious: Yes (Other)
  Sender: CHEPLAPHARM
  Company Number: CA-AstraZeneca-2020SF07670

PATIENT
  Age: 42 Year
  Sex: Female
  Weight: 72.574 kg

DRUGS (1)
  1. QUETIAPINE [Suspect]
     Active Substance: QUETIAPINE
     Indication: Bipolar disorder
     Dosage: LAST DOSE OF QUETIAPINE PRIOR TO ONSET WAS TAKEN ON 09-JUL-19?DAILY DOSE: 300 MILLIGRAM
     Route: 048
     Dates: start: 20190514, end: 20190709

REACTIONS (3)
  - Agitation [Recovered/Resolved]
  - Depression [Recovered/Resolved]
  - Tachyphrenia [Recovered/Resolved]

NARRATIVE: CASE EVENT DATE: 20190514
